FAERS Safety Report 8101547-7 (Version None)
Quarter: 2012Q1

REPORT INFORMATION
  Report Type: 
  Country: None (occurrence: None)
  Receive Date: 20120129
  Receipt Date: 20110916
  Transmission Date: 20120608
  Serious: No
  Sender: FDA-Public Use
  Company Number: US-ABBOTT-11P-163-0855722-00

PATIENT
  Sex: Female

DRUGS (2)
  1. HUMIRA [Suspect]
     Indication: DRUG HYPERSENSITIVITY
  2. HUMIRA [Suspect]
     Indication: COLITIS
     Route: 058
     Dates: start: 20110316

REACTIONS (6)
  - INJECTION SITE NODULE [None]
  - INJECTION SITE SWELLING [None]
  - INJECTION SITE HAEMATOMA [None]
  - INJECTION SITE PRURITUS [None]
  - HAEMATOCHEZIA [None]
  - INJECTION SITE REACTION [None]
